FAERS Safety Report 20426883 (Version 1)
Quarter: 2022Q1

REPORT INFORMATION
  Report Type: Spontaneous
  Country: GB (occurrence: GB)
  Receive Date: 20220204
  Receipt Date: 20220204
  Transmission Date: 20220423
  Serious: No
  Sender: FDA-Public Use
  Company Number: GB-EXELIXIS-CABO-21045647

PATIENT
  Age: 74 Year
  Sex: Male

DRUGS (5)
  1. CABOMETYX [Suspect]
     Active Substance: CABOZANTINIB S-MALATE
     Indication: Clear cell renal cell carcinoma
     Dosage: 60 MG
  2. CABOMETYX [Suspect]
     Active Substance: CABOZANTINIB S-MALATE
     Dosage: 40 MG
  3. CABOMETYX [Suspect]
     Active Substance: CABOZANTINIB S-MALATE
     Dosage: 40 MG
  4. CABOMETYX [Suspect]
     Active Substance: CABOZANTINIB S-MALATE
     Dosage: 20 MG
  5. NIVOLUMAB [Concomitant]
     Active Substance: NIVOLUMAB

REACTIONS (8)
  - Appetite disorder [Recovering/Resolving]
  - Diarrhoea [Recovering/Resolving]
  - Taste disorder [Recovering/Resolving]
  - Weight decreased [Recovering/Resolving]
  - Blood pressure increased [Recovering/Resolving]
  - Therapeutic response decreased [Unknown]
  - Metastases to bone [Unknown]
  - Metastases to soft tissue [Unknown]
